FAERS Safety Report 18061360 (Version 1)
Quarter: 2020Q3

REPORT INFORMATION
  Report Type: Spontaneous
  Country: US (occurrence: US)
  Receive Date: 20200723
  Receipt Date: 20200723
  Transmission Date: 20201103
  Serious: Yes (Hospitalization, Other)
  Sender: FDA-Public Use
  Company Number: US-PFIZER INC-2020196414

PATIENT
  Age: 76 Year
  Sex: Male
  Weight: 114.29 kg

DRUGS (1)
  1. BOSULIF [Suspect]
     Active Substance: BOSUTINIB MONOHYDRATE
     Indication: CHRONIC MYELOID LEUKAEMIA
     Dosage: 400 MG
     Dates: start: 20191218

REACTIONS (4)
  - Respiration abnormal [Recovered/Resolved]
  - Hyperventilation [Recovering/Resolving]
  - Pulmonary oedema [Recovered/Resolved]
  - Cardiac failure congestive [Unknown]
